FAERS Safety Report 8321910-9 (Version None)
Quarter: 2012Q2

REPORT INFORMATION
  Report Type: 
  Country: None (occurrence: None)
  Receive Date: 20120430
  Receipt Date: 20120424
  Transmission Date: 20120825
  Serious: Yes (Other)
  Sender: FDA-Public Use
  Company Number: US-GILEAD-2011-0047550

PATIENT
  Sex: Female

DRUGS (3)
  1. VENTAVIS [Concomitant]
  2. LETAIRIS [Suspect]
     Indication: PRODUCT USED FOR UNKNOWN INDICATION
     Dosage: 10 MG, UNK
     Route: 048
     Dates: start: 20100527, end: 20111130
  3. LETAIRIS [Suspect]
     Dosage: 10 UNK, UNK
     Route: 048
     Dates: start: 20120220

REACTIONS (3)
  - FATIGUE [None]
  - UNEVALUABLE EVENT [None]
  - NEOPLASM MALIGNANT [None]
